FAERS Safety Report 18022916 (Version 1)
Quarter: 2020Q3

REPORT INFORMATION
  Report Type: Spontaneous
  Country: US (occurrence: US)
  Receive Date: 20200715
  Receipt Date: 20200715
  Transmission Date: 20201103
  Serious: No
  Sender: FDA-Public Use
  Company Number: US-ALLERGAN-2015417US

PATIENT
  Sex: Male

DRUGS (2)
  1. UBRELVY [Suspect]
     Active Substance: UBROGEPANT
     Indication: MIGRAINE WITH AURA
     Dosage: 50 MG, PRN
     Route: 048
  2. UBRELVY [Suspect]
     Active Substance: UBROGEPANT
     Indication: MIGRAINE WITHOUT AURA
     Dosage: 50 UNK
     Route: 048

REACTIONS (1)
  - Drug ineffective [Unknown]
